FAERS Safety Report 12446136 (Version 1)
Quarter: 2016Q2

REPORT INFORMATION
  Report Type: Spontaneous
  Country: US (occurrence: None)
  Receive Date: 20160607
  Receipt Date: 20160607
  Transmission Date: 20160815
  Serious: Yes (Death, Hospitalization)
  Sender: FDA-Public Use
  Company Number: None

PATIENT
  Age: 64 Year
  Sex: Male
  Weight: 77.5 kg

DRUGS (2)
  1. MIRCERA [Suspect]
     Active Substance: METHOXY POLYETHYLENE GLYCOL-EPOETIN BETA
     Indication: CHRONIC KIDNEY DISEASE
     Dosage: 75 UG EVERY 4 WEEKS IVP
     Route: 042
     Dates: start: 20160507
  2. MIRCERA [Suspect]
     Active Substance: METHOXY POLYETHYLENE GLYCOL-EPOETIN BETA
     Indication: ANAEMIA
     Dosage: 75 UG EVERY 4 WEEKS IVP
     Route: 042
     Dates: start: 20160507

REACTIONS (2)
  - Procedural complication [None]
  - Cardio-respiratory arrest [None]

NARRATIVE: CASE EVENT DATE: 20160507
